FAERS Safety Report 13921489 (Version 1)
Quarter: 2017Q3

REPORT INFORMATION
  Report Type: Spontaneous
  Country: FR (occurrence: FR)
  Receive Date: 20170830
  Receipt Date: 20170830
  Transmission Date: 20171127
  Serious: Yes (Hospitalization)
  Sender: FDA-Public Use
  Company Number: FR-009507513-1708FRA012890

PATIENT
  Age: 63 Year
  Sex: Male

DRUGS (6)
  1. TEMODAL [Suspect]
     Active Substance: TEMOZOLOMIDE
     Indication: GLIOBLASTOMA
     Dosage: UNK
     Route: 048
     Dates: start: 201707, end: 20170810
  2. CLOBAZAM [Concomitant]
     Active Substance: CLOBAZAM
  3. ONDANSETRON [Concomitant]
     Active Substance: ONDANSETRON
  4. LEVETIRACETAM. [Concomitant]
     Active Substance: LEVETIRACETAM
  5. DIFFU-K [Concomitant]
     Active Substance: POTASSIUM CHLORIDE
  6. CALCIDOSE [Concomitant]
     Active Substance: CALCIUM CARBONATE

REACTIONS (2)
  - Hepatocellular injury [Recovering/Resolving]
  - Cholestasis [Recovering/Resolving]

NARRATIVE: CASE EVENT DATE: 20170806
